FAERS Safety Report 6176069-3 (Version None)
Quarter: 2009Q2

REPORT INFORMATION
  Report Type: 
  Country: None (occurrence: None)
  Receive Date: 20090501
  Receipt Date: 20090425
  Transmission Date: 20091009
  Serious: Yes (Hospitalization)
  Sender: FDA-Public Use
  Company Number: US-PFIZER INC-2009203431

PATIENT
  Sex: Male
  Weight: 74.83 kg

DRUGS (10)
  1. MARAVIROC [Suspect]
     Indication: HIV INFECTION
     Dosage: UNK
     Route: 048
     Dates: start: 20090306
  2. RITONAVIR [Concomitant]
     Dosage: UNK
     Route: 048
     Dates: start: 20090306
  3. DARUNAVIR [Concomitant]
     Dosage: UNK
     Route: 048
     Dates: start: 20090306
  4. ELVITEGRAVIR [Concomitant]
     Dosage: UNK
     Route: 048
     Dates: start: 20090306
  5. RALTEGRAVIR [Concomitant]
     Dosage: UNK
     Route: 048
     Dates: start: 20090306
  6. NYSTATIN [Concomitant]
     Dosage: UNK
     Route: 048
     Dates: start: 20090303
  7. COMBIVENT [Concomitant]
     Dosage: UNK
     Route: 055
  8. DOXAZOSIN [Concomitant]
     Dosage: UNK
     Route: 048
     Dates: start: 20090303
  9. ADVAIR DISKUS 100/50 [Concomitant]
     Dosage: UNK
     Route: 055
  10. LASIX [Concomitant]
     Dosage: UNK
     Route: 048
     Dates: start: 20090313

REACTIONS (1)
  - DYSPNOEA [None]
